FAERS Safety Report 19243331 (Version 1)
Quarter: 2021Q2

REPORT INFORMATION
  Report Type: Report from Study
  Country: TW (occurrence: TW)
  Receive Date: 20210511
  Receipt Date: 20210511
  Transmission Date: 20210717
  Serious: Yes (Other)
  Sender: FDA-Public Use
  Company Number: TW-TAKEDA-2019TUS022789

PATIENT
  Age: 40 Year
  Sex: Female

DRUGS (2)
  1. VEDOLIZUMAB [Suspect]
     Active Substance: VEDOLIZUMAB
     Indication: COLITIS ULCERATIVE
     Dosage: 300 MILLIGRAM
     Route: 042
     Dates: start: 20190411, end: 20200402
  2. VEDOLIZUMAB [Suspect]
     Active Substance: VEDOLIZUMAB
     Dosage: 300 MILLIGRAM
     Route: 042
     Dates: start: 20210506

REACTIONS (15)
  - Vomiting [Recovering/Resolving]
  - Heart rate increased [Recovering/Resolving]
  - Drug hypersensitivity [Recovering/Resolving]
  - Wheezing [Recovering/Resolving]
  - Dizziness [Unknown]
  - Hyperhidrosis [Unknown]
  - Dyspepsia [Recovered/Resolved]
  - Arthralgia [Recovering/Resolving]
  - Cough [Recovered/Resolved]
  - Haemolysis [Recovering/Resolving]
  - Asthenia [Recovering/Resolving]
  - Dyspnoea [Recovering/Resolving]
  - Colitis ulcerative [Recovering/Resolving]
  - Back pain [Unknown]
  - Nausea [Unknown]
